FAERS Safety Report 19469658 (Version 21)
Quarter: 2024Q1

REPORT INFORMATION
  Report Type: Report from Study
  Country: CA (occurrence: CA)
  Receive Date: 20210629
  Receipt Date: 20240108
  Transmission Date: 20240410
  Serious: Yes (Hospitalization, Other)
  Sender: FDA-Public Use
  Company Number: CA-JNJFOC-20210556825

PATIENT
  Age: 3 Year
  Sex: Female
  Weight: 16 kg

DRUGS (10)
  1. REMICADE [Suspect]
     Active Substance: INFLIXIMAB
     Indication: Colitis ulcerative
     Route: 041
  2. REMICADE [Suspect]
     Active Substance: INFLIXIMAB
     Dosage: ON 16-JUN-2021, THE PATIENT RECEIVED 1ST 250 MG OF INFLIXIMAB, RECOMBINANT INFUSION. ?ON 31-AUG-2021
     Route: 041
     Dates: start: 20210611
  3. REMICADE [Suspect]
     Active Substance: INFLIXIMAB
     Dosage: ON 02-SEP-2021, THE PATIENT RECEIVED 5TH DOSE OF REMICADE. THE PATIENT ALSO RECEIVED INFUSION ON 17-
     Route: 041
     Dates: start: 2021
  4. REMICADE [Suspect]
     Active Substance: INFLIXIMAB
     Dosage: STAT DOSE PRESCRIBED
     Route: 041
  5. REMICADE [Suspect]
     Active Substance: INFLIXIMAB
     Dosage: ON 23-FEB-2023, THE PATIENT RECEIVED 12TH REMICADE INFUSION AT THE DOSE OF THE 300 MG. EXPIRATION DA
     Route: 041
     Dates: start: 20230223
  6. REMICADE [Suspect]
     Active Substance: INFLIXIMAB
     Dosage: RESCUE DOSE. ON 31-MAY-2023, THE PATIENT RECEIVED 16TH LATEST INJECTION 400 MG OF INFLIXIMAB, RECOMB
     Route: 041
     Dates: start: 202304
  7. REMICADE [Suspect]
     Active Substance: INFLIXIMAB
     Route: 041
  8. REMICADE [Suspect]
     Active Substance: INFLIXIMAB
     Route: 041
  9. HYDROCORTISONE [Concomitant]
     Active Substance: HYDROCORTISONE
     Indication: Premedication
     Route: 065
  10. ENTYVIO [Concomitant]
     Active Substance: VEDOLIZUMAB
     Indication: Colitis ulcerative
     Route: 065
     Dates: start: 20230803

REACTIONS (10)
  - Haemorrhage [Unknown]
  - Colitis ulcerative [Not Recovered/Not Resolved]
  - Drug specific antibody present [Unknown]
  - Streptococcal infection [Unknown]
  - Drug level decreased [Unknown]
  - Fatigue [Unknown]
  - Dyspepsia [Unknown]
  - Therapeutic response decreased [Unknown]
  - Off label use [Unknown]
  - Product use issue [Unknown]

NARRATIVE: CASE EVENT DATE: 20210101
